FAERS Safety Report 9363168 (Version 1)
Quarter: 2013Q2

REPORT INFORMATION
  Report Type: Spontaneous
  Country: US (occurrence: None)
  Receive Date: 20130621
  Receipt Date: 20130621
  Transmission Date: 20140414
  Serious: Yes (Disabling)
  Sender: FDA-Public Use
  Company Number: None

PATIENT
  Age: 65 Year
  Sex: Female
  Weight: 58.97 kg

DRUGS (2)
  1. LETROZOLE [Suspect]
     Indication: BREAST CANCER
     Dosage: QUANTITY 30
     Route: 048
     Dates: start: 20130112, end: 20130201
  2. GABAPENTIN 300MG CAMBER/IG322 [Concomitant]

REACTIONS (5)
  - Pain in extremity [None]
  - Pain in extremity [None]
  - Carpal tunnel syndrome [None]
  - Musculoskeletal stiffness [None]
  - Middle insomnia [None]
